FAERS Safety Report 15819579 (Version 1)
Quarter: 2019Q1

REPORT INFORMATION
  Report Type: Spontaneous
  Country: SE (occurrence: SE)
  Receive Date: 20190114
  Receipt Date: 20190114
  Transmission Date: 20190417
  Serious: Yes (Hospitalization)
  Sender: FDA-Public Use
  Company Number: SE-TEVA-2019-SE-998346

PATIENT
  Age: 64 Year
  Sex: Female

DRUGS (2)
  1. FLUCONAZOLE. [Suspect]
     Active Substance: FLUCONAZOLE
     Indication: GENITAL INFECTION FUNGAL
     Route: 048
     Dates: start: 20181027, end: 20181208
  2. WARAN [Interacting]
     Active Substance: WARFARIN SODIUM
     Indication: EMBOLISM ARTERIAL
     Dates: start: 20110101, end: 20181208

REACTIONS (3)
  - Drug interaction [Not Recovered/Not Resolved]
  - International normalised ratio increased [Not Recovered/Not Resolved]
  - Labelled drug-drug interaction medication error [Not Recovered/Not Resolved]

NARRATIVE: CASE EVENT DATE: 2018
